FAERS Safety Report 9778408 (Version 1)
Quarter: 2013Q4

REPORT INFORMATION
  Report Type: Spontaneous
  Country: US (occurrence: None)
  Receive Date: 20131220
  Receipt Date: 20131220
  Transmission Date: 20140711
  Serious: No
  Sender: FDA-Public Use
  Company Number: None

PATIENT
  Age: 43 Year
  Sex: Male
  Weight: 138.35 kg

DRUGS (1)
  1. LISINOPRIL 10MG [Suspect]
     Dates: start: 20131216, end: 20131218

REACTIONS (2)
  - Drug ineffective [None]
  - Product substitution issue [None]
